FAERS Safety Report 23609045 (Version 1)
Quarter: 2024Q1

REPORT INFORMATION
  Report Type: Spontaneous
  Country: NL (occurrence: None)
  Receive Date: 20240308
  Receipt Date: 20240308
  Transmission Date: 20240410
  Serious: Yes (Life-Threatening, Other)
  Sender: FDA-Public Use
  Company Number: NL-MLMSERVICE-20170821-0860269-1

PATIENT
  Age: 73 Year
  Sex: Male

DRUGS (11)
  1. MELATONIN [Concomitant]
     Active Substance: MELATONIN
  2. ALFACALCIDOL [Concomitant]
     Active Substance: ALFACALCIDOL
  3. ACETAMINOPHEN [Interacting]
     Active Substance: ACETAMINOPHEN
     Indication: Pain
     Route: 042
  4. THIAMINE [Concomitant]
     Active Substance: THIAMINE
  5. TOLBUTAMIDE [Concomitant]
     Active Substance: TOLBUTAMIDE
  6. BENEFIX [Concomitant]
     Active Substance: COAGULATION FACTOR IX RECOMBINANT HUMAN\ISOPROPYL ALCOHOL
  7. FLUCLOXACILLIN [Interacting]
     Active Substance: FLUCLOXACILLIN
     Indication: Antibiotic therapy
     Route: 042
  8. ACETAMINOPHEN [Interacting]
     Active Substance: ACETAMINOPHEN
     Indication: Pain
     Route: 054
  9. INSULIN NOS [Concomitant]
     Active Substance: INSULIN NOS
     Dosage: DOSED BASED ON GLUCOSE LEVELS ()
  10. HALDOL [Concomitant]
     Active Substance: HALOPERIDOL
     Dosage: HALDOL DROPLETS BID ()
  11. CYKLOKAPRON [Concomitant]
     Active Substance: TRANEXAMIC ACID

REACTIONS (2)
  - Drug interaction [Unknown]
  - Metabolic acidosis [Recovered/Resolved]
